FAERS Safety Report 10215170 (Version 1)
Quarter: 2014Q2

REPORT INFORMATION
  Report Type: Report from Study
  Country: US (occurrence: US)
  Receive Date: 20140603
  Receipt Date: 20140603
  Transmission Date: 20141212
  Serious: Yes (Hospitalization, Other)
  Sender: FDA-Public Use
  Company Number: PHEH2014US010724

PATIENT
  Sex: Male

DRUGS (2)
  1. CLOZARIL [Suspect]
     Dosage: UNK UKN, UNK
  2. LISINOPRIL [Suspect]
     Dosage: UNK UKN, UNK

REACTIONS (2)
  - Angioedema [Unknown]
  - Infection [Unknown]
